FAERS Safety Report 11815134 (Version 1)
Quarter: 2015Q4

REPORT INFORMATION
  Report Type: Spontaneous
  Country: US (occurrence: US)
  Receive Date: 20151209
  Receipt Date: 20151209
  Transmission Date: 20160305
  Serious: Yes (Other)
  Sender: FDA-Public Use
  Company Number: US-SA-2015SA171998

PATIENT
  Age: 68 Year
  Sex: Female

DRUGS (5)
  1. TOUJEO [Suspect]
     Active Substance: INSULIN GLARGINE
     Indication: TYPE 2 DIABETES MELLITUS
     Dosage: DOSE:15 UNIT(S)
     Route: 065
     Dates: start: 201510
  2. SOLOSTAR [Concomitant]
     Active Substance: DEVICE
     Indication: TYPE 2 DIABETES MELLITUS
     Dates: start: 201510
  3. SOLOSTAR [Concomitant]
     Active Substance: DEVICE
  4. NOVOLOG [Concomitant]
     Active Substance: INSULIN ASPART
  5. LANTUS SOLOSTAR [Concomitant]
     Active Substance: INSULIN GLARGINE

REACTIONS (3)
  - Blood glucose decreased [Unknown]
  - Loss of consciousness [Unknown]
  - Blood glucose increased [Unknown]
